FAERS Safety Report 9869994 (Version 1)
Quarter: 2014Q1

REPORT INFORMATION
  Report Type: Spontaneous
  Country: US (occurrence: US)
  Receive Date: 20140205
  Receipt Date: 20140205
  Transmission Date: 20141002
  Serious: No
  Sender: FDA-Public Use
  Company Number: US-GLAXOSMITHKLINE-A1017069A

PATIENT
  Sex: Female

DRUGS (1)
  1. VALTREX [Suspect]
     Indication: HERPES VIRUS INFECTION
     Dosage: 500MG VARIABLE DOSE
     Route: 048

REACTIONS (5)
  - Herpes virus infection [Unknown]
  - Influenza like illness [Unknown]
  - Headache [Unknown]
  - Drug dispensing error [Recovered/Resolved]
  - Product quality issue [Unknown]
